FAERS Safety Report 16167537 (Version 1)
Quarter: 2019Q2

REPORT INFORMATION
  Report Type: Spontaneous
  Country: GB (occurrence: GB)
  Receive Date: 20190408
  Receipt Date: 20190408
  Transmission Date: 20190711
  Serious: Yes (Hospitalization)
  Sender: FDA-Public Use
  Company Number: GB-TEVA-2019-GB-1033924

PATIENT
  Age: 83 Year
  Sex: Male

DRUGS (12)
  1. TILDIEM LA [Concomitant]
     Active Substance: DILTIAZEM HYDROCHLORIDE
     Dosage: 200 MILLIGRAM DAILY;
  2. FUROSEMIDE. [Concomitant]
     Active Substance: FUROSEMIDE
     Dosage: 80 MILLIGRAM DAILY;
  3. CLONAZEPAM. [Concomitant]
     Active Substance: CLONAZEPAM
     Dosage: 500 MICROGRAM DAILY; NIGHT
  4. MANEVAC [Concomitant]
     Dosage: 10 ML DAILY;
  5. QUININE [Concomitant]
     Active Substance: QUININE
     Dosage: 200 MILLIGRAM DAILY; NIGHT
  6. NICORANDIL [Concomitant]
     Active Substance: NICORANDIL
     Dosage: 40 MILLIGRAM DAILY;
  7. PERINDOPRIL [Concomitant]
     Active Substance: PERINDOPRIL
     Dosage: 8 MILLIGRAM DAILY;
  8. ISOSORBIDE MONONITRATE. [Concomitant]
     Active Substance: ISOSORBIDE MONONITRATE
     Dosage: 120 MILLIGRAM DAILY;
  9. WARFARIN [Suspect]
     Active Substance: WARFARIN
     Indication: ATRIAL FIBRILLATION
     Dosage: 2.5MG ON MONDAY AND 2MG REST OF THE WEEK
  10. SOLIFENACIN [Concomitant]
     Active Substance: SOLIFENACIN
     Dosage: 10 MILLIGRAM DAILY;
  11. ATORVASTATIN [Concomitant]
     Active Substance: ATORVASTATIN
     Dosage: 40 MILLIGRAM DAILY; NIGHT
  12. PARACETAMOL [Concomitant]
     Active Substance: ACETAMINOPHEN
     Dosage: 4 GRAM DAILY;

REACTIONS (3)
  - Peripheral swelling [Unknown]
  - Contusion [Unknown]
  - Haematoma [Unknown]
